FAERS Safety Report 10180645 (Version 1)
Quarter: 2014Q2

REPORT INFORMATION
  Report Type: Spontaneous
  Country: US (occurrence: US)
  Receive Date: 20140519
  Receipt Date: 20140519
  Transmission Date: 20141212
  Serious: No
  Sender: FDA-Public Use
  Company Number: US-AMGEN INC.-USASP2014020335

PATIENT
  Age: 76 Year
  Sex: Female

DRUGS (4)
  1. PROLIA [Suspect]
     Indication: OSTEOPOROSIS POSTMENOPAUSAL
     Dosage: UNK
     Route: 065
     Dates: start: 201207
  2. SYNTHROID [Concomitant]
  3. ZOCOR [Concomitant]
  4. CELEBREX [Concomitant]

REACTIONS (5)
  - Pain [Unknown]
  - Arthralgia [Unknown]
  - Joint injury [Unknown]
  - Osteopenia [Unknown]
  - Musculoskeletal pain [Unknown]
